FAERS Safety Report 10225151 (Version 1)
Quarter: 2014Q1

REPORT INFORMATION
  Report Type: Spontaneous
  Country: US (occurrence: None)
  Receive Date: 20140306
  Receipt Date: 20140306
  Transmission Date: 20141002
  Serious: Yes (Other)
  Sender: FDA-Public Use
  Company Number: 163-21880-13112477

PATIENT
  Age: 78 Year
  Sex: Male
  Weight: 69.4 kg

DRUGS (4)
  1. REVLIMID (LENALIDOMIDE) (CAPSULES) [Suspect]
     Indication: PLASMA CELL MYELOMA
     Route: 048
     Dates: start: 20120601
  2. ZOMETA(ZOLEDRONIC ACID) [Concomitant]
  3. VITAMIN D3(COLECALCIFEROL) [Concomitant]
  4. XARELTO(RIVAROXABAN)(TABLETS) [Concomitant]

REACTIONS (8)
  - Drug hypersensitivity [None]
  - Confusional state [None]
  - Arthralgia [None]
  - Fatigue [None]
  - Insomnia [None]
  - Decreased appetite [None]
  - Diarrhoea [None]
  - Petechiae [None]
